FAERS Safety Report 13926359 (Version 1)
Quarter: 2017Q3

REPORT INFORMATION
  Report Type: Spontaneous
  Country: NL (occurrence: NL)
  Receive Date: 20170831
  Receipt Date: 20170831
  Transmission Date: 20171127
  Serious: Yes (Hospitalization, Other)
  Sender: FDA-Public Use
  Company Number: NL-MYLANLABS-2017M1053033

PATIENT

DRUGS (2)
  1. CLOMIPRAMINE MYLAN 75 MG, COMPRIM? PELLICUL? S?CABLE [Suspect]
     Active Substance: CLOMIPRAMINE
     Indication: DEPRESSION
     Dosage: 1X PER DAG 1 TABLET
     Route: 048
     Dates: start: 20170317, end: 20170407
  2. CLOMIPRAMINE HCL SANDOZ [Concomitant]
     Route: 048

REACTIONS (4)
  - Therapeutic response unexpected [Recovered/Resolved]
  - Depression [Recovered/Resolved]
  - Drug effect decreased [Recovered/Resolved]
  - Suicidal ideation [Recovered/Resolved]

NARRATIVE: CASE EVENT DATE: 2017
